FAERS Safety Report 24032010 (Version 1)
Quarter: 2024Q2

REPORT INFORMATION
  Report Type: Report from Study
  Country: RU (occurrence: RU)
  Receive Date: 20240630
  Receipt Date: 20240630
  Transmission Date: 20240716
  Serious: Yes (Other)
  Sender: FDA-Public Use
  Company Number: RU-002147023-NVSC2024RU133617

PATIENT
  Age: 55 Year
  Sex: Female

DRUGS (1)
  1. ASCIMINIB [Suspect]
     Active Substance: ASCIMINIB
     Indication: Chronic myeloid leukaemia
     Dosage: 200 MG
     Route: 048

REACTIONS (2)
  - Neutropenia [Recovering/Resolving]
  - Leukopenia [Recovering/Resolving]
